FAERS Safety Report 24542108 (Version 1)
Quarter: 2024Q4

REPORT INFORMATION
  Report Type: Spontaneous
  Country: US (occurrence: US)
  Receive Date: 20241023
  Receipt Date: 20241023
  Transmission Date: 20250114
  Serious: No
  Sender: SANOFI AVENTIS
  Company Number: US-SA-2024SA301480

PATIENT
  Age: 14 Year
  Sex: Male

DRUGS (2)
  1. DUPIXENT [Suspect]
     Active Substance: DUPILUMAB
     Indication: Eosinophilic oesophagitis
     Dosage: 300 MG, QOW
     Route: 058
     Dates: start: 20240827
  2. TACROLIMUS [Concomitant]
     Active Substance: TACROLIMUS

REACTIONS (2)
  - Injection site urticaria [Recovered/Resolved]
  - Injection site pain [Recovered/Resolved]

NARRATIVE: CASE EVENT DATE: 20240101
